FAERS Safety Report 8128078-2 (Version None)
Quarter: 2012Q1

REPORT INFORMATION
  Report Type: 
  Country: None (occurrence: None)
  Receive Date: 20120210
  Receipt Date: 20120207
  Transmission Date: 20120608
  Serious: Yes (Death, Hospitalization, Other)
  Sender: FDA-Public Use
  Company Number: US-PFIZER INC-2012015493

PATIENT
  Sex: Female

DRUGS (7)
  1. ADVAIR DISKUS 100/50 [Concomitant]
     Dosage: UNK
  2. INSULIN DETEMIR [Suspect]
  3. LIPITOR [Suspect]
     Dosage: 40 MG, 1X/DAY
  4. CREON [Concomitant]
     Dosage: UNK
  5. LYRICA [Suspect]
     Dosage: 1 CAP 3X 150 MG
  6. NEURONTIN [Suspect]
     Dosage: 2 TABS 4 X DAY 800 MG
  7. CYCLOSPORINE [Concomitant]
     Dosage: UNK

REACTIONS (4)
  - DEATH [None]
  - FALL [None]
  - PNEUMONIA [None]
  - JOINT INJURY [None]
